FAERS Safety Report 22362384 (Version 1)
Quarter: 2023Q2

REPORT INFORMATION
  Report Type: Spontaneous
  Country: GB (occurrence: GB)
  Receive Date: 20230524
  Receipt Date: 20230524
  Transmission Date: 20230721
  Serious: Yes (Other)
  Sender: FDA-Public Use
  Company Number: GB-AMGEN-GBRSP2023084615

PATIENT
  Age: 31 Year
  Sex: Female

DRUGS (8)
  1. FILGRASTIM [Suspect]
     Active Substance: FILGRASTIM
     Indication: Prophylaxis
     Dosage: 300 MICROGRAM, FOR FIVE DAYS
     Route: 065
  2. ETOPOSIDE [Concomitant]
     Active Substance: ETOPOSIDE
     Indication: Adjuvant therapy
     Dosage: 165 MICROGRAM/SQ. METER (DAY 1,2,3)
  3. CISPLATIN [Concomitant]
     Active Substance: CISPLATIN
     Indication: Adjuvant therapy
     Dosage: 50 MILLIGRAM/SQ. METER DAY 1,2,3
  4. PACLITAXEL [Concomitant]
     Active Substance: PACLITAXEL
     Indication: Adjuvant therapy
     Dosage: 175 MILLIGRAM/SQ. METER
  5. PALONOSETRON [Concomitant]
     Active Substance: PALONOSETRON
     Indication: Supportive care
  6. DEXAMETHASONE [Concomitant]
     Active Substance: DEXAMETHASONE
     Indication: Supportive care
  7. METOCLOPRAMIDE [Concomitant]
     Active Substance: METOCLOPRAMIDE
     Indication: Supportive care
  8. CYCLIZINE [Concomitant]
     Active Substance: CYCLIZINE
     Indication: Supportive care

REACTIONS (6)
  - Neuropathy peripheral [Unknown]
  - Ovarian germ cell teratoma benign [Unknown]
  - Premature delivery [Unknown]
  - Maternal exposure during pregnancy [Unknown]
  - Nausea [Unknown]
  - Constipation [Unknown]
